FAERS Safety Report 8135398-4 (Version None)
Quarter: 2012Q1

REPORT INFORMATION
  Report Type: 
  Country: None (occurrence: None)
  Receive Date: 20120214
  Receipt Date: 20120206
  Transmission Date: 20120608
  Serious: Yes (Disabling)
  Sender: FDA-Public Use
  Company Number: US-PURDUE-USA-2012-0081994

PATIENT
  Sex: Female

DRUGS (3)
  1. FIORICET [Suspect]
     Indication: MIGRAINE
  2. VICODIN [Suspect]
     Indication: PAIN
     Dosage: 25 MG, DAILY
  3. OXYCODONE HCL [Suspect]
     Indication: PAIN
     Dosage: 20 MG, TID

REACTIONS (3)
  - DRUG INEFFECTIVE [None]
  - MUSCULOSKELETAL DISORDER [None]
  - PAIN [None]
